FAERS Safety Report 6164098-5 (Version None)
Quarter: 2009Q2

REPORT INFORMATION
  Report Type: 
  Country: None (occurrence: None)
  Receive Date: 20090422
  Receipt Date: 20090417
  Transmission Date: 20091009
  Serious: Yes (Hospitalization, Disabling)
  Sender: FDA-Public Use
  Company Number: B0373740B

PATIENT
  Sex: Female

DRUGS (4)
  1. ROSIGLITAZONE [Suspect]
     Route: 048
     Dates: start: 20030207
  2. METFORMIN HCL [Suspect]
     Route: 048
     Dates: start: 20030903
  3. AMARYL [Concomitant]
     Route: 048
     Dates: start: 20020901
  4. GLUCOPHAGE [Concomitant]
     Route: 048
     Dates: start: 20040909

REACTIONS (4)
  - ANGINA UNSTABLE [None]
  - CARDIAC FAILURE [None]
  - RETINAL HAEMORRHAGE [None]
  - VITREOUS HAEMORRHAGE [None]
